FAERS Safety Report 26158313 (Version 1)
Quarter: 2025Q4

REPORT INFORMATION
  Report Type: Spontaneous
  Country: US (occurrence: None)
  Receive Date: 20251215
  Receipt Date: 20251215
  Transmission Date: 20260119
  Serious: Yes (unspecified)
  Sender: FDA-CTU
  Company Number: None

PATIENT
  Age: 56 Year
  Sex: Female
  Weight: 71.1 kg

DRUGS (4)
  1. COSMETICS [Suspect]
     Active Substance: COSMETICS
     Indication: Hair texture abnormal
     Dosage: OTHER QUANTITY : 1 SPRAY(S);?OTHER FREQUENCY : NOT STATED;?OTHER ROUTE : APPLIED TO HAIR;
     Route: 050
     Dates: start: 20251108, end: 20251212
  2. SPIRONOLACTONE [Concomitant]
     Active Substance: SPIRONOLACTONE
  3. PROGESTERONE [Concomitant]
     Active Substance: PROGESTERONE
  4. estrogen patch 0.50 mg [Concomitant]

REACTIONS (4)
  - Trichorrhexis [None]
  - Alopecia [None]
  - Product label confusion [None]
  - Wrong technique in product usage process [None]

NARRATIVE: CASE EVENT DATE: 20251213
